FAERS Safety Report 10301464 (Version 2)
Quarter: 2018Q2

REPORT INFORMATION
  Report Type: Spontaneous
  Country: JP (occurrence: JP)
  Receive Date: 20140714
  Receipt Date: 20180522
  Transmission Date: 20180711
  Serious: Yes (Death, Life-Threatening)
  Sender: FDA-Public Use
  Company Number: JP-ROCHE-1432731

PATIENT
  Age: 74 Year
  Sex: Male
  Weight: 62 kg

DRUGS (9)
  1. CARBOPLATIN. [Concomitant]
     Active Substance: CARBOPLATIN
     Indication: LUNG ADENOCARCINOMA
     Route: 065
     Dates: start: 20080716, end: 20081006
  2. PACLITAXEL. [Concomitant]
     Active Substance: PACLITAXEL
     Indication: LUNG ADENOCARCINOMA
     Route: 065
     Dates: start: 20080716, end: 20081006
  3. ALOXI [Concomitant]
     Active Substance: PALONOSETRON HYDROCHLORIDE
     Indication: ANTIEMETIC SUPPORTIVE CARE
     Route: 042
     Dates: start: 20131225, end: 20131225
  4. PACLITAXEL. [Concomitant]
     Active Substance: PACLITAXEL
     Dosage: COMPLETED TREATMENT CYCLE NUMBER: 1
     Route: 041
     Dates: start: 20131225, end: 20131225
  5. AVASTIN [Suspect]
     Active Substance: BEVACIZUMAB
     Indication: LUNG ADENOCARCINOMA
     Dosage: TREATMENT LINE: TREATMENT CYCLE WHEN TREATMENT COMPLETION WAS DONE NUMBER OF ?FOURTH: 1
     Route: 041
     Dates: start: 20131225, end: 20131225
  6. CARBOPLATIN. [Concomitant]
     Active Substance: CARBOPLATIN
     Route: 041
     Dates: start: 20131225, end: 20131225
  7. CARBOPLATIN. [Concomitant]
     Active Substance: CARBOPLATIN
     Route: 065
     Dates: start: 20081027, end: 20121219
  8. PROEMEND [Concomitant]
     Active Substance: FOSAPREPITANT
     Indication: ANTIEMETIC SUPPORTIVE CARE
     Route: 041
     Dates: start: 20131225, end: 20131225
  9. DECADRON [Concomitant]
     Active Substance: DEXAMETHASONE
     Indication: ANTIEMETIC SUPPORTIVE CARE
     Route: 042
     Dates: start: 20131225, end: 20131225

REACTIONS (4)
  - Malignant ascites [Fatal]
  - Aortic dissection [Recovering/Resolving]
  - Embolism [Recovering/Resolving]
  - Hypertension [Unknown]

NARRATIVE: CASE EVENT DATE: 20131226
